FAERS Safety Report 18113390 (Version 1)
Quarter: 2020Q3

REPORT INFORMATION
  Report Type: Spontaneous
  Country: US (occurrence: US)
  Receive Date: 20200805
  Receipt Date: 20200805
  Transmission Date: 20201103
  Serious: Yes (Other)
  Sender: FDA-Public Use
  Company Number: None

PATIENT
  Sex: Female

DRUGS (2)
  1. IBRANCE [Suspect]
     Active Substance: PALBOCICLIB
     Indication: BREAST CANCER FEMALE
     Dosage: ?          OTHER FREQUENCY:DAILY21DAYSON/7OFF;?
     Route: 048
     Dates: start: 20200727, end: 20200802
  2. IBRANCE [Suspect]
     Active Substance: PALBOCICLIB
     Indication: METASTASES TO LUNG
     Dosage: ?          OTHER FREQUENCY:DAILY21DAYSON/7OFF;?
     Route: 048
     Dates: start: 20200727, end: 20200802

REACTIONS (2)
  - Dyspnoea [None]
  - Therapy interrupted [None]
